FAERS Safety Report 8104906-1 (Version None)
Quarter: 2012Q1

REPORT INFORMATION
  Report Type: 
  Country: None (occurrence: None)
  Receive Date: 20120201
  Receipt Date: 20120126
  Transmission Date: 20120608
  Serious: Yes (Other)
  Sender: FDA-Public Use
  Company Number: US-GLAXOSMITHKLINE-A0940528A

PATIENT
  Age: 73 Year
  Sex: Female

DRUGS (4)
  1. TENORMIN [Concomitant]
  2. NORVASC [Concomitant]
  3. ADVAIR DISKUS 100/50 [Suspect]
     Indication: CHRONIC OBSTRUCTIVE PULMONARY DISEASE
     Dosage: 1PUFF TWICE PER DAY
     Route: 055
     Dates: start: 20090101
  4. SYNTHROID [Concomitant]

REACTIONS (4)
  - DENTAL CARIES [None]
  - GINGIVAL PAIN [None]
  - GINGIVAL DISCOLOURATION [None]
  - CATARACT [None]
